FAERS Safety Report 8859723 (Version 1)
Quarter: 2012Q4

REPORT INFORMATION
  Report Type: Report from Study
  Country: US (occurrence: US)
  Receive Date: 20121025
  Receipt Date: 20121025
  Transmission Date: 20130627
  Serious: No
  Sender: FDA-Public Use
  Company Number: US-ABBOTT-11P-163-0886988-00

PATIENT
  Sex: Female
  Weight: 38.59 kg

DRUGS (3)
  1. LUPRON DEPOT 3.75 MG [Suspect]
     Indication: ENDOMETRIOSIS
     Route: 050
     Dates: start: 201112
  2. UNKNOWN MEDICATION [Concomitant]
     Indication: DEPRESSION
  3. OXYCODONE AND ACETAMINOPHEN [Concomitant]
     Indication: PAIN
     Dosage: Took only one pill
     Route: 048
     Dates: start: 201112, end: 201112

REACTIONS (6)
  - Dizziness [Recovered/Resolved]
  - Pallor [Recovered/Resolved]
  - Nausea [Recovered/Resolved]
  - Vaginal haemorrhage [Recovered/Resolved]
  - Musculoskeletal discomfort [Not Recovered/Not Resolved]
  - Headache [Not Recovered/Not Resolved]
